FAERS Safety Report 5035098-3 (Version None)
Quarter: 2006Q2

REPORT INFORMATION
  Report Type: 
  Country: None (occurrence: None)
  Receive Date: 20060622
  Receipt Date: 20060608
  Transmission Date: 20061013
  Serious: Yes (Hospitalization)
  Sender: FDA-Public Use
  Company Number: 221893

PATIENT
  Age: 64 Year
  Sex: Male
  Weight: 101 kg

DRUGS (5)
  1. AVASTIN [Suspect]
     Indication: COLON CANCER
     Dosage: 5 MG/M2, UNK, INTRAVENOUS
     Route: 042
     Dates: start: 20050323
  2. IRINOTECAN HCL [Suspect]
     Indication: COLON CANCER
     Dosage: 90 MG/M2, UNK, INTRAVENOUS
     Route: 042
     Dates: start: 20050323, end: 20050404
  3. FLUOROURACIL [Suspect]
     Indication: COLON CANCER
     Dosage: 2600 MG/M2, UNK, INTRAVENOUS
     Route: 042
     Dates: start: 20050323
  4. FOLIC ACID [Suspect]
     Indication: COLON CANCER
     Dosage: 550 MG/M2, UNK, INTRAVENOUS
     Route: 042
     Dates: start: 20050323, end: 20050404
  5. DIMENHYDRINATE [Concomitant]

REACTIONS (15)
  - ALANINE AMINOTRANSFERASE INCREASED [None]
  - ASPARTATE AMINOTRANSFERASE INCREASED [None]
  - BLOOD ALKALINE PHOSPHATASE INCREASED [None]
  - BLOOD BILIRUBIN INCREASED [None]
  - BLOOD LACTATE DEHYDROGENASE INCREASED [None]
  - CONFUSIONAL STATE [None]
  - DEHYDRATION [None]
  - GAMMA-GLUTAMYLTRANSFERASE INCREASED [None]
  - GENERAL PHYSICAL HEALTH DETERIORATION [None]
  - HAEMATOCRIT INCREASED [None]
  - HAEMOGLOBIN DECREASED [None]
  - HYPOKALAEMIA [None]
  - ILEUS [None]
  - ORAL CANDIDIASIS [None]
  - ORAL INTAKE REDUCED [None]
